FAERS Safety Report 9041124 (Version 1)
Quarter: 2013Q1

REPORT INFORMATION
  Report Type: Spontaneous
  Country: US (occurrence: None)
  Receive Date: 20130114
  Receipt Date: 20130114
  Transmission Date: 20140127
  Serious: Yes (Death)
  Sender: FDA-Public Use
  Company Number: 2013-0126

PATIENT
  Age: 11 Year
  Sex: Male
  Weight: 17.3 kg

DRUGS (9)
  1. INCRELEX [Suspect]
     Indication: BODY HEIGHT BELOW NORMAL
     Dosage: 242.76 UG/KG (121.38 UG/KG, 2 IN 1 D), SUBCUTANEOUS
     Route: 058
     Dates: start: 20110712
  2. INCRELEX [Suspect]
     Indication: OFF LABEL USE
     Dosage: 242.76 UG/KG (121.38 UG/KG, 2 IN 1 D), SUBCUTANEOUS
     Route: 058
     Dates: start: 20110712
  3. ALBUTEROL (SALBUTAMOL) [Concomitant]
  4. CREON ENZYMES (PANCREATIN) [Concomitant]
  5. VITAMIN E (TOCOPHEROL) [Concomitant]
  6. VITAMIN D (ERGOCALCIFEROL) [Concomitant]
  7. VITAMIN A (RETINOL) [Concomitant]
  8. VITAMIN K (PHYTOMENADIONE) [Concomitant]
  9. ACTIGALL (URSODEOXYCHOLIC ACID) [Concomitant]

REACTIONS (1)
  - Hepatic failure [None]
